FAERS Safety Report 8078766-1 (Version None)
Quarter: 2012Q1

REPORT INFORMATION
  Report Type: 
  Country: None (occurrence: None)
  Receive Date: 20120125
  Receipt Date: 20120116
  Transmission Date: 20120608
  Serious: Yes (Death)
  Sender: FDA-Public Use
  Company Number: TPA2012A00325

PATIENT
  Age: 92 Year
  Sex: Male

DRUGS (1)
  1. ACTOS [Suspect]
     Indication: TYPE 2 DIABETES MELLITUS
     Dosage: THERAPYDATES-LONG TIME

REACTIONS (3)
  - METASTASES TO LIVER [None]
  - METASTASIS [None]
  - BLADDER CANCER [None]
